FAERS Safety Report 8571463-5 (Version None)
Quarter: 2012Q3

REPORT INFORMATION
  Report Type: 
  Country: None (occurrence: None)
  Receive Date: 20120806
  Receipt Date: 20120725
  Transmission Date: 20120928
  Serious: Yes (Other)
  Sender: FDA-Public Use
  Company Number: SE-JNJFOC-20120714882

PATIENT
  Sex: Female

DRUGS (12)
  1. FLUPENTIXOL [Suspect]
     Indication: PROPHYLAXIS
     Route: 065
  2. CHLORPROTHIXENE [Suspect]
     Indication: PROPHYLAXIS
     Route: 065
  3. ARIPIPRAZOLE [Suspect]
     Indication: PROPHYLAXIS
     Route: 065
  4. OLANZAPINE [Suspect]
     Indication: PROPHYLAXIS
     Route: 065
  5. CLOZAPINE [Suspect]
     Indication: PROPHYLAXIS
     Route: 065
  6. ZIPRASIDONE HYDROCHLORIDE [Suspect]
     Indication: PROPHYLAXIS
     Route: 065
  7. QUETIAPINE FUMARATE [Suspect]
     Indication: PROPHYLAXIS
     Route: 065
  8. PERPHENAZINE [Suspect]
     Indication: PROPHYLAXIS
     Route: 065
  9. RISPERIDONE [Suspect]
     Indication: PROPHYLAXIS
     Route: 065
  10. HALOPERIDOL [Suspect]
     Indication: PROPHYLAXIS
     Route: 065
  11. FLUPHENAZINE [Suspect]
     Indication: PROPHYLAXIS
     Route: 065
  12. ZUCLOPENTHIXOL [Suspect]
     Indication: PROPHYLAXIS
     Route: 065

REACTIONS (3)
  - PREMATURE LABOUR [None]
  - MATERNAL EXPOSURE DURING PREGNANCY [None]
  - GESTATIONAL DIABETES [None]
